FAERS Safety Report 15842978 (Version 1)
Quarter: 2019Q1

REPORT INFORMATION
  Report Type: Spontaneous
  Country: US (occurrence: US)
  Receive Date: 20190118
  Receipt Date: 20190118
  Transmission Date: 20190417
  Serious: Yes (Hospitalization)
  Sender: FDA-Public Use
  Company Number: None

PATIENT
  Age: 20 Year
  Sex: Male

DRUGS (3)
  1. TOBI PODHALER, PREVACID, ORKAMBI, PULMOZYME [Concomitant]
  2. CREON, ALBUTEROL, ZYRTEC, MULTIVITAMIN, AQUADEKS,VIT D3 [Concomitant]
  3. SODIUM CHLORIDE. [Suspect]
     Active Substance: SODIUM CHLORIDE
     Indication: CYSTIC FIBROSIS
     Route: 055
     Dates: start: 20180116

REACTIONS (1)
  - Infection [None]

NARRATIVE: CASE EVENT DATE: 20190115
